FAERS Safety Report 17399503 (Version 6)
Quarter: 2020Q2

REPORT INFORMATION
  Report Type: Spontaneous
  Country: US (occurrence: US)
  Receive Date: 20200211
  Receipt Date: 20200608
  Transmission Date: 20200713
  Serious: No
  Sender: FDA-Public Use
  Company Number: US-BIOGEN-2020BI00836849

PATIENT
  Age: 69 Year
  Sex: Female

DRUGS (11)
  1. AVONEX PEN [Suspect]
     Active Substance: INTERFERON BETA-1A
     Indication: MULTIPLE SCLEROSIS
     Route: 030
     Dates: start: 2017
  2. AVONEX PEN [Suspect]
     Active Substance: INTERFERON BETA-1A
  3. LEVOTHYROXINE SODIUM. [Concomitant]
     Active Substance: LEVOTHYROXINE SODIUM
     Route: 065
  4. TYLENOL [Concomitant]
     Active Substance: ACETAMINOPHEN
     Route: 065
  5. AVONEX [Suspect]
     Active Substance: INTERFERON BETA-1A
  6. AVONEX PEN [Suspect]
     Active Substance: INTERFERON BETA-1A
     Route: 030
     Dates: start: 20000223
  7. OXYBUTYNIN CHLORIDE. [Concomitant]
     Active Substance: OXYBUTYNIN CHLORIDE
     Route: 065
  8. AVONEX [Suspect]
     Active Substance: INTERFERON BETA-1A
     Indication: MULTIPLE SCLEROSIS
     Route: 030
     Dates: start: 20000223
  9. AVONEX [Suspect]
     Active Substance: INTERFERON BETA-1A
  10. AVONEX [Suspect]
     Active Substance: INTERFERON BETA-1A
  11. AVONEX PEN [Suspect]
     Active Substance: INTERFERON BETA-1A

REACTIONS (10)
  - Contusion [Recovered/Resolved]
  - Skin discolouration [Recovered/Resolved]
  - Injection site bruising [Unknown]
  - Nervousness [Unknown]
  - Peripheral swelling [Unknown]
  - Needle issue [Recovered/Resolved]
  - Product dose omission [Not Recovered/Not Resolved]
  - Puncture site haemorrhage [Unknown]
  - Injection site pain [Unknown]
  - Injury associated with device [Recovered/Resolved with Sequelae]

NARRATIVE: CASE EVENT DATE: 20200204
